FAERS Safety Report 8024889-2 (Version None)
Quarter: 2012Q1

REPORT INFORMATION
  Report Type: 
  Country: None (occurrence: None)
  Receive Date: 20120105
  Receipt Date: 20111226
  Transmission Date: 20120608
  Serious: Yes (Hospitalization)
  Sender: FDA-Public Use
  Company Number: PHHY2011JP108408

PATIENT
  Age: 69 Year
  Sex: Male

DRUGS (1)
  1. NEORAL [Suspect]
     Indication: PSORIASIS
     Dosage: 50 MG, UNK
     Route: 048
     Dates: end: 20111128

REACTIONS (2)
  - ACCIDENT [None]
  - TRAUMATIC ARTHROPATHY [None]
